FAERS Safety Report 13497370 (Version 1)
Quarter: 2017Q2

REPORT INFORMATION
  Report Type: Spontaneous
  Country: US (occurrence: US)
  Receive Date: 20170428
  Receipt Date: 20170428
  Transmission Date: 20170830
  Serious: No
  Sender: FDA-Public Use
  Company Number: None

PATIENT
  Age: 70 Year
  Sex: Male

DRUGS (1)
  1. STELARA [Suspect]
     Active Substance: USTEKINUMAB
     Dosage: 90MG Q8WKS SQ
     Route: 058
     Dates: start: 201612, end: 20170428

REACTIONS (1)
  - Arthralgia [None]

NARRATIVE: CASE EVENT DATE: 20161215
